FAERS Safety Report 4521390-5 (Version None)
Quarter: 2004Q4

REPORT INFORMATION
  Report Type: 
  Country: None (occurrence: None)
  Receive Date: 20041208
  Receipt Date: 20040716
  Transmission Date: 20050328
  Serious: Yes (Hospitalization)
  Sender: FDA-Public Use
  Company Number: US-MERCK-0407USA01419

PATIENT
  Age: 77 Year
  Sex: Female
  Weight: 60 kg

DRUGS (4)
  1. ZETIA [Suspect]
     Route: 048
     Dates: start: 20040706, end: 20040712
  2. [THERAPY UNSPECIFIED] [Concomitant]
     Route: 065
     Dates: end: 20040712
  3. POTASSIUM (UNSPECIFIED) [Concomitant]
     Route: 065
     Dates: end: 20040712
  4. AMILORIDE [Concomitant]
     Route: 065
     Dates: end: 20040712

REACTIONS (9)
  - ABDOMINAL PAIN UPPER [None]
  - ARTHRALGIA [None]
  - ASTHENIA [None]
  - BLOOD CREATININE INCREASED [None]
  - BLOOD POTASSIUM INCREASED [None]
  - DIFFICULTY IN WALKING [None]
  - DYSARTHRIA [None]
  - FEELING ABNORMAL [None]
  - MUSCULOSKELETAL DISCOMFORT [None]
